FAERS Safety Report 19940192 (Version 2)
Quarter: 2021Q4

REPORT INFORMATION
  Report Type: Report from Study
  Country: US (occurrence: US)
  Receive Date: 20211012
  Receipt Date: 20211209
  Transmission Date: 20220303
  Serious: Yes (Hospitalization)
  Sender: FDA-Public Use
  Company Number: US-BIOGEN-2021BI01056244

PATIENT
  Sex: Female

DRUGS (1)
  1. TYSABRI [Suspect]
     Active Substance: NATALIZUMAB
     Indication: Multiple sclerosis
     Dosage: INFUSED OVER 1 HOUR
     Route: 065
     Dates: start: 20210401

REACTIONS (5)
  - Multiple sclerosis relapse [Recovered/Resolved]
  - Dysstasia [Recovered/Resolved]
  - Aphasia [Recovered/Resolved]
  - Cerebral disorder [Unknown]
  - Pyrexia [Recovered/Resolved]
